FAERS Safety Report 18369949 (Version 1)
Quarter: 2020Q4

REPORT INFORMATION
  Report Type: Spontaneous
  Country: GB (occurrence: GB)
  Receive Date: 20201012
  Receipt Date: 20201012
  Transmission Date: 20210114
  Serious: Yes (Hospitalization, Other)
  Sender: FDA-Public Use
  Company Number: GB-LUPIN PHARMACEUTICALS INC.-2020-06916

PATIENT
  Age: 92 Year
  Sex: Male

DRUGS (6)
  1. OXYCODONE [Suspect]
     Active Substance: OXYCODONE
     Indication: PAIN
     Dosage: 1 DOSAGE FORM, SINGLE
     Route: 058
  2. ALFENTANIL. [Suspect]
     Active Substance: ALFENTANIL
     Indication: ABDOMINAL PAIN
     Dosage: 0.5 MILLIGRAM PER 24 HOURS, SYRINGE DRIVER
     Route: 065
  3. OXYCODONE [Suspect]
     Active Substance: OXYCODONE
     Indication: APPENDICITIS
  4. ALFENTANIL. [Suspect]
     Active Substance: ALFENTANIL
     Dosage: 1.5 MILLIGRAM PER 24 HOURS, SYRINGE DRIVER
     Route: 065
  5. MIDAZOLAM. [Suspect]
     Active Substance: MIDAZOLAM
     Indication: ABDOMINAL DISCOMFORT
     Dosage: 5 MILLIGRAM PER 24 HOURS, 5 DAYS, SYRINGE DRIVER
     Route: 065
  6. ALFENTANIL. [Suspect]
     Active Substance: ALFENTANIL
     Dosage: 1 MILLIGRAM PER 24 HOURS, SYRINGE DRIVER
     Route: 065

REACTIONS (1)
  - Hyperaesthesia [Recovering/Resolving]
